FAERS Safety Report 15461432 (Version 1)
Quarter: 2018Q4

REPORT INFORMATION
  Report Type: Report from Study
  Country: US (occurrence: US)
  Receive Date: 20181003
  Receipt Date: 20181003
  Transmission Date: 20190204
  Serious: Yes (Other)
  Sender: FDA-Public Use
  Company Number: US-GILEAD-2018-0366194

PATIENT
  Age: 53 Year
  Sex: Female

DRUGS (13)
  1. PILOCARPINE. [Concomitant]
     Active Substance: PILOCARPINE
  2. SYMBICORT [Concomitant]
     Active Substance: BUDESONIDE\FORMOTEROL FUMARATE DIHYDRATE
  3. AMLODIPINE [Concomitant]
     Active Substance: AMLODIPINE BESYLATE
  4. JANUMET [Concomitant]
     Active Substance: METFORMIN HYDROCHLORIDE\SITAGLIPTIN PHOSPHATE
  5. METOPROLOL. [Concomitant]
     Active Substance: METOPROLOL
  6. PROAIR HFA [Concomitant]
     Active Substance: ALBUTEROL SULFATE
  7. AMITIZA [Concomitant]
     Active Substance: LUBIPROSTONE
  8. DULOXETINE. [Concomitant]
     Active Substance: DULOXETINE
  9. FLECAINIDE [Concomitant]
     Active Substance: FLECAINIDE
  10. AMBRISENTAN [Suspect]
     Active Substance: AMBRISENTAN
     Indication: PULMONARY ARTERIAL HYPERTENSION
     Dosage: 10 MG, QD
     Route: 065
     Dates: start: 20160624, end: 20180917
  11. CRESTOR [Concomitant]
     Active Substance: ROSUVASTATIN CALCIUM
  12. FUROSEMIDE. [Concomitant]
     Active Substance: FUROSEMIDE
  13. XARELTO [Concomitant]
     Active Substance: RIVAROXABAN

REACTIONS (1)
  - Pericardial effusion [Unknown]
